FAERS Safety Report 19415556 (Version 3)
Quarter: 2021Q3

REPORT INFORMATION
  Report Type: Report from Study
  Country: US (occurrence: US)
  Receive Date: 20210614
  Receipt Date: 20210715
  Transmission Date: 20211014
  Serious: Yes (Hospitalization, Other)
  Sender: FDA-Public Use
  Company Number: US-TAKEDA-2021TUS035288

PATIENT
  Sex: Female

DRUGS (12)
  1. TEDUGLUTIDE [Suspect]
     Active Substance: TEDUGLUTIDE
     Indication: SHORT-BOWEL SYNDROME
     Dosage: 2.88 MILLIGRAM, QD
     Route: 058
     Dates: start: 20210518
  2. TEDUGLUTIDE [Suspect]
     Active Substance: TEDUGLUTIDE
     Indication: INTESTINAL ANASTOMOSIS
     Dosage: 2.88 MILLIGRAM, QD
     Route: 058
     Dates: start: 202105
  3. TEDUGLUTIDE [Suspect]
     Active Substance: TEDUGLUTIDE
     Dosage: 0.288 MILLILITER
     Route: 058
     Dates: start: 20210518
  4. TEDUGLUTIDE [Suspect]
     Active Substance: TEDUGLUTIDE
     Indication: INTESTINAL ANASTOMOSIS
     Dosage: 2.88 MILLIGRAM, QD
     Route: 058
     Dates: start: 202105
  5. TEDUGLUTIDE [Suspect]
     Active Substance: TEDUGLUTIDE
     Dosage: 0.288 MILLILITER
     Route: 058
     Dates: start: 20210518
  6. TEDUGLUTIDE [Suspect]
     Active Substance: TEDUGLUTIDE
     Indication: INTESTINAL ANASTOMOSIS
     Dosage: 2.88 MILLIGRAM, QD
     Route: 058
     Dates: start: 202105
  7. TEDUGLUTIDE [Suspect]
     Active Substance: TEDUGLUTIDE
     Dosage: 0.288 MILLILITER
     Route: 058
     Dates: start: 20210518
  8. TEDUGLUTIDE [Suspect]
     Active Substance: TEDUGLUTIDE
     Indication: INTESTINAL ANASTOMOSIS
     Dosage: 2.88 MILLIGRAM, QD
     Route: 058
     Dates: start: 202105
  9. TEDUGLUTIDE [Suspect]
     Active Substance: TEDUGLUTIDE
     Indication: SHORT-BOWEL SYNDROME
     Dosage: 2.88 MILLIGRAM, QD
     Route: 058
     Dates: start: 20210518
  10. TEDUGLUTIDE [Suspect]
     Active Substance: TEDUGLUTIDE
     Dosage: 0.288 MILLILITER
     Route: 058
     Dates: start: 20210518
  11. TEDUGLUTIDE [Suspect]
     Active Substance: TEDUGLUTIDE
     Indication: SHORT-BOWEL SYNDROME
     Dosage: 2.88 MILLIGRAM, QD
     Route: 058
     Dates: start: 20210518
  12. TEDUGLUTIDE [Suspect]
     Active Substance: TEDUGLUTIDE
     Indication: SHORT-BOWEL SYNDROME
     Dosage: 2.88 MILLIGRAM, QD
     Route: 058
     Dates: start: 20210518

REACTIONS (5)
  - Ileus [Unknown]
  - Weight increased [Unknown]
  - Flatulence [Unknown]
  - Gastrointestinal disorder [Unknown]
  - Constipation [Unknown]
